FAERS Safety Report 18587111 (Version 1)
Quarter: 2020Q4

REPORT INFORMATION
  Report Type: Other
  Country: US (occurrence: US)
  Receive Date: 20201207
  Receipt Date: 20201207
  Transmission Date: 20210114
  Serious: No
  Sender: FDA-Public Use
  Company Number: US-ROCHE-2665581

PATIENT
  Age: 22 Year
  Sex: Male

DRUGS (10)
  1. LEVETIRACETAM. [Concomitant]
     Active Substance: LEVETIRACETAM
  2. DIAZEPAM. [Suspect]
     Active Substance: DIAZEPAM
     Indication: PSYCHOTIC DISORDER
     Dosage: AT BEDTIME
     Route: 065
  3. QUETIAPINE. [Concomitant]
     Active Substance: QUETIAPINE
     Dosage: IMMIDIATE RELEASE
  4. LACOSAMIDE. [Concomitant]
     Active Substance: LACOSAMIDE
  5. QUETIAPINE. [Concomitant]
     Active Substance: QUETIAPINE
     Dosage: AT BEDTIME
  6. OXCARBAZEPINE. [Suspect]
     Active Substance: OXCARBAZEPINE
     Indication: PSYCHOTIC DISORDER
     Route: 065
  7. LORAZEPAM. [Concomitant]
     Active Substance: LORAZEPAM
  8. LITHIUM. [Concomitant]
     Active Substance: LITHIUM
  9. QUETIAPINE. [Concomitant]
     Active Substance: QUETIAPINE
     Dosage: AT BEDTIME
  10. ARIPIPRAZOLE. [Concomitant]
     Active Substance: ARIPIPRAZOLE

REACTIONS (2)
  - Drug interaction [Unknown]
  - Therapeutic response decreased [Unknown]
